FAERS Safety Report 12448418 (Version 2)
Quarter: 2016Q2

REPORT INFORMATION
  Report Type: Spontaneous
  Country: CH (occurrence: CH)
  Receive Date: 20160608
  Receipt Date: 20160615
  Transmission Date: 20160815
  Serious: Yes (Hospitalization)
  Sender: FDA-Public Use
  Company Number: CH-ASTRAZENECA-2016SE58606

PATIENT
  Age: 49 Year
  Sex: Male

DRUGS (6)
  1. DILZEM [Concomitant]
     Active Substance: DILTIAZEM
  2. CRESTOR [Concomitant]
     Active Substance: ROSUVASTATIN CALCIUM
     Route: 048
     Dates: start: 201405
  3. ASPIRIN CARDIO [Interacting]
     Active Substance: ASPIRIN
     Indication: ACUTE MYOCARDIAL INFARCTION
     Route: 048
     Dates: start: 201405
  4. DANCOR [Concomitant]
     Active Substance: NICORANDIL
  5. BRILIQUE [Suspect]
     Active Substance: TICAGRELOR
     Indication: ACUTE MYOCARDIAL INFARCTION
     Route: 048
     Dates: start: 201405, end: 20151204
  6. NEBIVOLOL. [Concomitant]
     Active Substance: NEBIVOLOL

REACTIONS (10)
  - Haemorrhagic anaemia [Recovering/Resolving]
  - Vomiting [Unknown]
  - Gastrooesophageal reflux disease [Unknown]
  - Gastrointestinal haemorrhage [Recovering/Resolving]
  - Melaena [Recovered/Resolved]
  - Tachycardia [Recovered/Resolved]
  - Malaise [Unknown]
  - Gastrointestinal ulcer [Unknown]
  - Potentiating drug interaction [Recovering/Resolving]
  - Angina pectoris [Recovered/Resolved]

NARRATIVE: CASE EVENT DATE: 201405
